FAERS Safety Report 10265802 (Version 3)
Quarter: 2014Q3

REPORT INFORMATION
  Report Type: Spontaneous
  Country: GB (occurrence: GB)
  Receive Date: 20140627
  Receipt Date: 20140808
  Transmission Date: 20150326
  Serious: Yes (Hospitalization, Other)
  Sender: FDA-Public Use
  Company Number: GB-AMGEN-GBRSP2014047049

PATIENT

DRUGS (11)
  1. CYCLOPHOSPHAMIDE. [Concomitant]
     Active Substance: CYCLOPHOSPHAMIDE
  2. DEX                                /00048102/ [Concomitant]
  3. VINCRISTINE                        /00078802/ [Concomitant]
     Active Substance: VINCRISTINE
  4. NPLATE [Suspect]
     Active Substance: ROMIPLOSTIM
     Indication: IMMUNE THROMBOCYTOPENIC PURPURA
     Dosage: 10 MUG/KG, UNK
     Route: 065
  5. RITUXIMAB [Concomitant]
     Active Substance: RITUXIMAB
  6. DAPSONE. [Concomitant]
     Active Substance: DAPSONE
  7. PREDNISOLONE. [Concomitant]
     Active Substance: PREDNISOLONE
  8. ELTROMBOPAG [Concomitant]
     Active Substance: ELTROMBOPAG
  9. MYCOPHENOLATE [Concomitant]
     Active Substance: MYCOPHENOLIC ACID
  10. DANAZOL. [Concomitant]
     Active Substance: DANAZOL
  11. IMMUNOGLOBULIN                     /00025201/ [Concomitant]
     Active Substance: HUMAN IMMUNOGLOBULIN G
     Route: 042

REACTIONS (2)
  - Platelet count decreased [Unknown]
  - Haemorrhage [Unknown]
